FAERS Safety Report 5953497-X (Version None)
Quarter: 2008Q4

REPORT INFORMATION
  Report Type: 
  Country: None (occurrence: None)
  Receive Date: 20081114
  Receipt Date: 20081104
  Transmission Date: 20090506
  Serious: Yes (Other)
  Sender: FDA-Public Use
  Company Number: BE-ROCHE-595487

PATIENT
  Age: 79 Year
  Sex: Female

DRUGS (3)
  1. BONIVA [Suspect]
     Indication: OSTEOPOROSIS POSTMENOPAUSAL
     Dosage: THERAPY WAS STOPPED ON NOVEMBER 2008.
     Route: 048
     Dates: start: 20060501
  2. CALCIUM/VITAMIN D [Concomitant]
     Indication: OSTEOPOROSIS POSTMENOPAUSAL
     Dates: start: 20060501
  3. MAREVAN [Concomitant]
     Indication: OSTEOPOROSIS POSTMENOPAUSAL
     Dosage: FREQUENCY: DAILY
     Route: 048

REACTIONS (2)
  - DRUG INEFFECTIVE [None]
  - PATHOLOGICAL FRACTURE [None]
